FAERS Safety Report 26216874 (Version 1)
Quarter: 2025Q4

REPORT INFORMATION
  Report Type: Spontaneous
  Country: GB (occurrence: GB)
  Receive Date: 20251231
  Receipt Date: 20251231
  Transmission Date: 20260118
  Serious: Yes (Other)
  Sender: ACCORD
  Company Number: None

PATIENT
  Age: 81 Year
  Sex: Male
  Weight: 86 kg

DRUGS (5)
  1. AMLODIPINE [Suspect]
     Active Substance: AMLODIPINE BESYLATE
     Indication: Product used for unknown indication
     Dosage: TAKE ONE DAILY, STRENGTH: 5MG
     Dates: start: 20250318
  2. PENICILLIN V [Concomitant]
     Active Substance: PENICILLIN V
     Dosage: TAKE TWO 4 TIMES/DAY
  3. FINASTERIDE [Concomitant]
     Active Substance: FINASTERIDE
     Dosage: TAKE ONE DAILY
     Dates: start: 20240216
  4. TAMSULOSIN HYDROCHLORIDE [Concomitant]
     Active Substance: TAMSULOSIN HYDROCHLORIDE
     Dosage: TAKE ONE DAILY
     Dates: start: 20240216
  5. EZETIMIBE [Concomitant]
     Active Substance: EZETIMIBE
     Dosage: TAKE ONE DAILY
     Dates: start: 20250318

REACTIONS (2)
  - Headache [Recovered/Resolved]
  - Pain [Unknown]
